FAERS Safety Report 17314008 (Version 1)
Quarter: 2020Q1

REPORT INFORMATION
  Report Type: Report from Study
  Country: CA (occurrence: CA)
  Receive Date: 20200124
  Receipt Date: 20200124
  Transmission Date: 20200409
  Serious: Yes (Other)
  Sender: FDA-Public Use
  Company Number: CA-GLAXOSMITHKLINE-CA2020AMR011212

PATIENT
  Age: 68 Year
  Sex: Female

DRUGS (1)
  1. MEPOLIZUMAB [Suspect]
     Active Substance: MEPOLIZUMAB
     Indication: ASTHMA
     Dosage: 100 MG, Z(MONTHLY)
     Route: 042
     Dates: start: 20171002

REACTIONS (5)
  - Cerebrovascular accident [Unknown]
  - Fall [Unknown]
  - Muscular weakness [Unknown]
  - Lower limb fracture [Unknown]
  - Headache [Unknown]

NARRATIVE: CASE EVENT DATE: 20191229
